FAERS Safety Report 8141679-0 (Version None)
Quarter: 2012Q1

REPORT INFORMATION
  Report Type: 
  Country: None (occurrence: None)
  Receive Date: 20120216
  Receipt Date: 20120208
  Transmission Date: 20120608
  Serious: Yes (Hospitalization, Other)
  Sender: FDA-Public Use
  Company Number: PHHY2012AU007034

PATIENT
  Sex: Female

DRUGS (20)
  1. COLGOUT [Concomitant]
     Dosage: 500 UG, BID
     Route: 048
  2. PANAFCORT [Concomitant]
     Dosage: 5 MG, 1 MANE
     Route: 048
  3. ARAVA [Concomitant]
     Dosage: 10 MG, 1 ALTERNATE DAY
     Route: 048
  4. ENDEP [Concomitant]
     Dosage: 50 MG, PRN, NOCTE
     Route: 048
  5. WARFARIN SODIUM [Concomitant]
     Dosage: 5 MG, QD
  6. SPIRIVA [Concomitant]
     Dosage: 18 UG, QD
  7. WARFARIN SODIUM [Concomitant]
     Dosage: 1 MG, 2 AND A HALF DAILY
  8. OXYCONTIN [Concomitant]
     Dosage: 5 MG,
     Route: 048
  9. PLAQUENIL [Concomitant]
     Dosage: 200 MG, 2 MANE MDU
     Route: 048
  10. PANAMAX [Concomitant]
     Dosage: 500 MG, PRN
     Route: 048
  11. SYMBICORD [Concomitant]
     Dosage: 200/6MCG INH 2 PUFF BD
  12. VENTOLIN [Concomitant]
     Dosage: 100MCG INH 1-2 PUFF QID PRN
  13. RABEPRAZOLE SODIUM [Concomitant]
     Dosage: 20 MG, 1 BD MDU
     Route: 048
  14. PRISTIQ [Concomitant]
     Dosage: 50 MG, 1 MANE MDU
     Route: 048
  15. ESTRADIOL [Concomitant]
     Dosage: 1 MG, APPLIED TO LOWER TRUNK OR THIGH
     Route: 061
  16. ZOLEDRONOC ACID [Suspect]
     Dosage: 5 MG,
     Route: 042
     Dates: start: 20110818
  17. CELESTONE [Concomitant]
     Dosage: 0.02%
  18. WARFARIN SODIUM [Concomitant]
     Dosage: 3 MG, QD
     Route: 048
  19. FOLIC ACID [Concomitant]
     Dosage: 0.5 MG, 1 WEEKLY
     Route: 048
  20. IRBESARTAN [Concomitant]
     Dosage: 300 MG, 1 DAILY MDU
     Route: 048

REACTIONS (10)
  - WOUND INFECTION [None]
  - FIBROMYALGIA [None]
  - LACERATION [None]
  - WOUND [None]
  - ARTHRITIS BACTERIAL [None]
  - FALL [None]
  - POLYARTHRITIS [None]
  - IMPAIRED HEALING [None]
  - HYPERURICAEMIA [None]
  - ACCIDENT [None]
